FAERS Safety Report 25160379 (Version 1)
Quarter: 2025Q2

REPORT INFORMATION
  Report Type: Spontaneous
  Country: US (occurrence: None)
  Receive Date: 20250403
  Receipt Date: 20250403
  Transmission Date: 20250716
  Serious: Yes (Life-Threatening)
  Sender: FDA-CTU
  Company Number: None

PATIENT
  Sex: Male
  Weight: 94.3 kg

DRUGS (1)
  1. ASPIRIN [Suspect]
     Active Substance: ASPIRIN
     Route: 048

REACTIONS (4)
  - Wheezing [None]
  - Stridor [None]
  - Chest pain [None]
  - Anaphylactic reaction [None]
